FAERS Safety Report 11116812 (Version 4)
Quarter: 2016Q2

REPORT INFORMATION
  Report Type: Report from Study
  Country: US (occurrence: US)
  Receive Date: 20150515
  Receipt Date: 20160603
  Transmission Date: 20160815
  Serious: Yes (Other)
  Sender: FDA-Public Use
  Company Number: US-SA-2015SA062894

PATIENT
  Age: 41 Year
  Sex: Female

DRUGS (2)
  1. LEMTRADA [Suspect]
     Active Substance: ALEMTUZUMAB
     Indication: MULTIPLE SCLEROSIS
     Route: 041
     Dates: start: 20160504, end: 20160506
  2. LEMTRADA [Suspect]
     Active Substance: ALEMTUZUMAB
     Indication: MULTIPLE SCLEROSIS
     Route: 041
     Dates: start: 20150420, end: 20150424

REACTIONS (11)
  - Multiple sclerosis relapse [Recovered/Resolved]
  - Flushing [Unknown]
  - Pharyngitis streptococcal [Recovered/Resolved]
  - Oropharyngeal pain [Recovered/Resolved]
  - White blood cell count increased [Not Recovered/Not Resolved]
  - Tongue discolouration [Recovered/Resolved]
  - Nuclear magnetic resonance imaging abnormal [Not Recovered/Not Resolved]
  - Palpitations [Unknown]
  - Dyspnoea [Unknown]
  - Therapeutic response decreased [Unknown]
  - Injection site bruising [Recovering/Resolving]

NARRATIVE: CASE EVENT DATE: 201504
